FAERS Safety Report 9307771 (Version 5)
Quarter: 2013Q3

REPORT INFORMATION
  Report Type: Report from Study
  Country: US (occurrence: US)
  Receive Date: 20130524
  Receipt Date: 20130807
  Transmission Date: 20140515
  Serious: No
  Sender: FDA-Public Use
  Company Number: US-VERTEX PHARMACEUTICALS INC-2013-006344

PATIENT
  Age: 47 Year
  Sex: Male
  Weight: 116 kg

DRUGS (10)
  1. VX-950 (TELAPREVIR) [Suspect]
     Indication: HEPATITIS C
     Dosage: 750 MG, TID
     Route: 048
     Dates: start: 20130507
  2. COPEGUS [Suspect]
     Indication: HEPATITIS C
     Dosage: 3 DF, BID
     Dates: start: 20130507
  3. PEGASYS [Suspect]
     Indication: HEPATITIS C
     Dosage: 180 ?G, QW
     Route: 058
     Dates: start: 20130507
  4. ASA [Concomitant]
     Dosage: 81 MG, UNK
  5. ZANTAC [Concomitant]
  6. METFORMIN [Concomitant]
     Dosage: 1 DF, BID
  7. BUSPAR [Concomitant]
     Dosage: 150 MG, UNK
  8. VISTARIL [Concomitant]
     Dosage: 25 MG, UNK
  9. LEXAPRO [Concomitant]
     Dosage: 10 MG, UNK
  10. SYNTHROID [Concomitant]
     Dosage: 88 MG, UNK

REACTIONS (11)
  - Agitation [Unknown]
  - Insomnia [Not Recovered/Not Resolved]
  - Myalgia [Not Recovered/Not Resolved]
  - Muscle spasms [Not Recovered/Not Resolved]
  - Gingival swelling [Not Recovered/Not Resolved]
  - Pain [Not Recovered/Not Resolved]
  - Rash [Not Recovered/Not Resolved]
  - Vomiting [Not Recovered/Not Resolved]
  - Pruritus [Not Recovered/Not Resolved]
  - Dysgeusia [Not Recovered/Not Resolved]
  - Nausea [Not Recovered/Not Resolved]
